FAERS Safety Report 15918942 (Version 2)
Quarter: 2019Q1

REPORT INFORMATION
  Report Type: Spontaneous
  Country: CN (occurrence: CN)
  Receive Date: 20190205
  Receipt Date: 20190214
  Transmission Date: 20190417
  Serious: Yes (Other)
  Sender: FDA-Public Use
  Company Number: CN-PFIZER INC-2019043267

PATIENT
  Age: 50 Year
  Sex: Male
  Weight: 70 kg

DRUGS (7)
  1. PREDNISONE. [Concomitant]
     Active Substance: PREDNISONE
     Dosage: 30 MG, 3X/DAY (TID) 5 DAY HALD DOSE
     Route: 048
  2. TROPISETRON [Concomitant]
     Active Substance: TROPISETRON
     Indication: PROPHYLAXIS OF NAUSEA AND VOMITING
     Dosage: 5 MG, UNK
     Route: 042
  3. ENDOXAN ASTA [Suspect]
     Active Substance: CYCLOPHOSPHAMIDE
     Indication: T-CELL LYMPHOMA
     Dosage: 0.6 G, 1X/DAY
     Route: 041
     Dates: start: 20181130, end: 20181130
  4. DIPHENHYDRAMINE. [Concomitant]
     Active Substance: DIPHENHYDRAMINE
     Dosage: 20 MG, UNK
     Route: 030
  5. PANTOPRAZOLE [Concomitant]
     Active Substance: PANTOPRAZOLE
     Indication: PROPHYLAXIS
     Dosage: 40 MG, UNK
     Route: 042
  6. PHARMORUBICIN [Suspect]
     Active Substance: EPIRUBICIN
     Indication: T-CELL LYMPHOMA
     Dosage: 75 MG, 1X/DAY
     Route: 041
     Dates: start: 20181130, end: 20181130
  7. VINDESINE SULFATE [Suspect]
     Active Substance: VINDESINE SULFATE
     Indication: T-CELL LYMPHOMA
     Dosage: 4 MG, 1X/DAY
     Route: 042
     Dates: start: 20181130, end: 20181130

REACTIONS (2)
  - Bone marrow failure [Recovering/Resolving]
  - Anaphylactic shock [Recovering/Resolving]

NARRATIVE: CASE EVENT DATE: 20181206
